FAERS Safety Report 25794808 (Version 1)
Quarter: 2025Q3

REPORT INFORMATION
  Report Type: Spontaneous
  Country: CN (occurrence: CN)
  Receive Date: 20250912
  Receipt Date: 20250912
  Transmission Date: 20251020
  Serious: Yes (Other)
  Sender: ROCHE
  Company Number: CN-ROCHE-10000382208

PATIENT
  Age: 64 Year
  Sex: Male

DRUGS (7)
  1. FARICIMAB [Suspect]
     Active Substance: FARICIMAB
     Indication: Macular oedema
     Route: 031
     Dates: start: 20250619
  2. FARICIMAB [Suspect]
     Active Substance: FARICIMAB
     Route: 031
     Dates: start: 20250717
  3. FARICIMAB [Suspect]
     Active Substance: FARICIMAB
     Route: 031
     Dates: start: 20250820
  4. VANCOMYCIN [Concomitant]
     Active Substance: VANCOMYCIN
     Route: 050
     Dates: start: 20250901
  5. CEFTAZIDIME [Concomitant]
     Active Substance: CEFTAZIDIME
     Dates: start: 20250901
  6. METHYLPREDNISOLONE [Concomitant]
     Active Substance: METHYLPREDNISOLONE
  7. CEFUROXIME [Concomitant]
     Active Substance: CEFUROXIME

REACTIONS (4)
  - Conjunctival hyperaemia [Not Recovered/Not Resolved]
  - Conjunctival oedema [Not Recovered/Not Resolved]
  - Endophthalmitis [Not Recovered/Not Resolved]
  - Visual acuity reduced [Not Recovered/Not Resolved]

NARRATIVE: CASE EVENT DATE: 20250825
